FAERS Safety Report 8445980 (Version 2)
Quarter: 2017Q3

REPORT INFORMATION
  Report Type: Spontaneous
  Country: US (occurrence: US)
  Receive Date: 20120307
  Receipt Date: 20170925
  Transmission Date: 20171128
  Serious: No
  Sender: FDA-Public Use
  Company Number: US-ASTRAZENECA-2011SE65860

PATIENT
  Age: 39 Year
  Sex: Female

DRUGS (1)
  1. ZOMIG [Suspect]
     Active Substance: ZOLMITRIPTAN
     Dosage: 5 MG, UNKNOWN
     Route: 048

REACTIONS (6)
  - Hypersensitivity [Unknown]
  - Fatigue [Unknown]
  - Exposure during pregnancy [Unknown]
  - Seasonal allergy [Unknown]
  - Hiccups [Unknown]
  - Memory impairment [Unknown]
